FAERS Safety Report 6805553-1 (Version None)
Quarter: 2010Q2

REPORT INFORMATION
  Report Type: 
  Country: None (occurrence: None)
  Receive Date: 20100628
  Receipt Date: 20080102
  Transmission Date: 20101027
  Serious: No
  Sender: FDA-Public Use
  Company Number: US-PFIZER INC-2008000673

PATIENT
  Sex: Female
  Weight: 73.48 kg

DRUGS (6)
  1. XALATAN [Suspect]
     Indication: GLAUCOMA
  2. PROTONIX [Concomitant]
     Indication: ABDOMINAL DISCOMFORT
  3. VALSARTAN [Concomitant]
     Indication: HYPERTENSION
  4. NEURONTIN [Concomitant]
     Indication: NEUROPATHY PERIPHERAL
  5. LIPITOR [Concomitant]
     Indication: BLOOD CHOLESTEROL INCREASED
  6. VITAMINS [Concomitant]

REACTIONS (5)
  - FATIGUE [None]
  - INSOMNIA [None]
  - NIGHTMARE [None]
  - SLEEP TALKING [None]
  - SNORING [None]
